FAERS Safety Report 17466416 (Version 1)
Quarter: 2020Q1

REPORT INFORMATION
  Report Type: Spontaneous
  Country: ES (occurrence: ES)
  Receive Date: 20200227
  Receipt Date: 20200227
  Transmission Date: 20200409
  Serious: Yes (Hospitalization)
  Sender: FDA-Public Use
  Company Number: ES-NOVOPROD-713263

PATIENT
  Age: 58 Year
  Sex: Male
  Weight: 60.5 kg

DRUGS (6)
  1. EBYMECT [Suspect]
     Active Substance: DAPAGLIFLOZIN PROPANEDIOL\METFORMIN HYDROCHLORIDE
     Indication: TYPE 2 DIABETES MELLITUS
     Dosage: 1 EVERY 12 HOURS
     Route: 065
     Dates: start: 20200121
  2. TRESIBA [Suspect]
     Active Substance: INSULIN DEGLUDEC
     Indication: TYPE 2 DIABETES MELLITUS
     Dosage: 60 IU AT BREAKFAST
     Route: 065
     Dates: start: 20200121
  3. HUMALOG [Suspect]
     Active Substance: INSULIN LISPRO
     Indication: TYPE 2 DIABETES MELLITUS
     Dosage: 12UI AT BREAKFAST, 12UI AT DINNER, 12UI AT LUNCH
     Route: 065
     Dates: start: 20190513
  4. BENFEROL [Concomitant]
     Indication: VITAMIN D DEFICIENCY
     Dosage: 1 DOSAGE FORM EVERY 15 DAYS
     Route: 065
     Dates: start: 20191118
  5. DIAZEPAM. [Concomitant]
     Active Substance: DIAZEPAM
     Indication: ANXIETY
     Dosage: 5 MG EVERY 12 HOURS
     Route: 065
     Dates: start: 20190328
  6. KARVEZIDE [Concomitant]
     Active Substance: HYDROCHLOROTHIAZIDE\IRBESARTAN
     Indication: SECONDARY HYPERTENSION
     Dosage: 1 DF, QD
     Route: 065
     Dates: start: 20171124

REACTIONS (2)
  - Diabetic ketoacidosis [Recovering/Resolving]
  - Urinary tract candidiasis [Recovering/Resolving]

NARRATIVE: CASE EVENT DATE: 20200125
